FAERS Safety Report 12429480 (Version 1)
Quarter: 2016Q2

REPORT INFORMATION
  Report Type: Report from Study
  Country: DE (occurrence: DE)
  Receive Date: 20160602
  Receipt Date: 20160602
  Transmission Date: 20160815
  Serious: Yes (Hospitalization, Disabling, Other)
  Sender: FDA-Public Use
  Company Number: DE-IPSEN BIOPHARMACEUTICALS, INC.-2016-01716

PATIENT
  Sex: Male
  Weight: 58 kg

DRUGS (1)
  1. DYSPORT [Suspect]
     Active Substance: ABOBOTULINUMTOXINA
     Indication: MUSCLE SPASTICITY
     Dosage: 1500 UNITS
     Route: 030
     Dates: start: 20150702, end: 20150702

REACTIONS (10)
  - Phimosis [Not Recovered/Not Resolved]
  - Diarrhoea [Recovered/Resolved]
  - Hypertonia [Unknown]
  - General physical health deterioration [Not Recovered/Not Resolved]
  - Bacterial infection [Unknown]
  - Pneumonia [Recovered/Resolved with Sequelae]
  - Gastrointestinal disorder [Unknown]
  - Dysarthria [Unknown]
  - Muscular weakness [Unknown]
  - Urinary tract infection [Recovered/Resolved]

NARRATIVE: CASE EVENT DATE: 2015
